FAERS Safety Report 6142292-7 (Version None)
Quarter: 2009Q2

REPORT INFORMATION
  Report Type: 
  Country: None (occurrence: None)
  Receive Date: 20090403
  Receipt Date: 20090324
  Transmission Date: 20091009
  Serious: Yes (Other)
  Sender: FDA-Public Use
  Company Number: US-PFIZER INC-2009159854

PATIENT
  Sex: Female
  Weight: 47.6 kg

DRUGS (1)
  1. DEPO-SUBQ PROVERA 104 [Suspect]
     Indication: CONTRACEPTION
     Dosage: 104 MG, UNK
     Route: 058

REACTIONS (3)
  - ABORTION SPONTANEOUS [None]
  - DRUG INEFFECTIVE [None]
  - UNINTENDED PREGNANCY [None]
